FAERS Safety Report 6549195-4 (Version None)
Quarter: 2010Q1

REPORT INFORMATION
  Report Type: 
  Country: None (occurrence: None)
  Receive Date: 20100125
  Receipt Date: 20100114
  Transmission Date: 20100710
  Serious: Yes (Hospitalization)
  Sender: FDA-Public Use
  Company Number: US-BRISTOL-MYERS SQUIBB COMPANY-14889521

PATIENT
  Age: 79 Year
  Sex: Female
  Weight: 86 kg

DRUGS (11)
  1. IXEMPRA KIT [Suspect]
     Indication: BREAST CANCER
     Dates: start: 20091127, end: 20091218
  2. CYTOXAN [Suspect]
     Indication: BREAST CANCER
     Dates: start: 20090902, end: 20091106
  3. ADRIAMYCIN PFS [Suspect]
     Indication: BREAST CANCER
     Dates: start: 20090902, end: 20091106
  4. ZOLOFT [Concomitant]
     Dates: start: 20090914
  5. MULTI-VITAMIN [Concomitant]
     Dates: start: 20091226
  6. TOPROL-XL [Concomitant]
     Dates: start: 20090609
  7. SYNTHROID [Concomitant]
     Dates: start: 20090101
  8. ADVAIR [Concomitant]
     Dosage: 1 DF = 500/50(1 PUFF)
     Route: 055
     Dates: start: 20000101
  9. PEPCID [Concomitant]
     Dates: start: 20070101
  10. ALTACE [Concomitant]
     Dates: start: 20090909
  11. DESITIN [Concomitant]
     Dosage: 1 DF = 1 APPLICATION OINTMENT

REACTIONS (3)
  - DEHYDRATION [None]
  - DIARRHOEA [None]
  - PANCYTOPENIA [None]
